FAERS Safety Report 15721189 (Version 2)
Quarter: 2019Q4

REPORT INFORMATION
  Report Type: Report from Study
  Country: CA (occurrence: CA)
  Receive Date: 20181214
  Receipt Date: 20191112
  Transmission Date: 20200122
  Serious: Yes (Hospitalization)
  Sender: FDA-Public Use
  Company Number: CA-UCBSA-2018029069

PATIENT
  Sex: Female

DRUGS (6)
  1. CORTISONE [Concomitant]
     Active Substance: CORTISONE
     Indication: PAIN
     Dosage: SHOTS TO BOTH KNEES
  2. METHOTREXATE. [Concomitant]
     Active Substance: METHOTREXATE
     Indication: PRODUCT USED FOR UNKNOWN INDICATION
     Dosage: UNK
  3. CERTOLIZUMAB PEGOL AUTOCLICKS [Suspect]
     Active Substance: CERTOLIZUMAB PEGOL
     Dosage: 200 MG, EV 2 WEEKS(QOW)
     Route: 058
     Dates: start: 20180716
  4. INSULIN [Concomitant]
     Active Substance: INSULIN NOS
     Indication: TYPE 1 DIABETES MELLITUS
  5. HUMIRA [Concomitant]
     Active Substance: ADALIMUMAB
     Indication: PRODUCT USED FOR UNKNOWN INDICATION
  6. CERTOLIZUMAB PEGOL AUTOCLICKS [Suspect]
     Active Substance: CERTOLIZUMAB PEGOL
     Indication: RHEUMATOID ARTHRITIS
     Dosage: 400 MG, EV 2 WEEKS(QOW) X 3
     Route: 058
     Dates: start: 20180604, end: 20180702

REACTIONS (9)
  - Drug ineffective [Unknown]
  - Insomnia [Unknown]
  - Nasal discomfort [Unknown]
  - Blood potassium decreased [Unknown]
  - Sinus pain [Unknown]
  - Blood urea increased [Unknown]
  - Blood creatinine increased [Unknown]
  - Red blood cell count decreased [Unknown]
  - Arthropathy [Recovering/Resolving]

NARRATIVE: CASE EVENT DATE: 2018
